FAERS Safety Report 21576523 (Version 2)
Quarter: 2023Q1

REPORT INFORMATION
  Report Type: Spontaneous
  Country: US (occurrence: US)
  Receive Date: 20221110
  Receipt Date: 20230309
  Transmission Date: 20230418
  Serious: Yes (Other)
  Sender: FDA-Public Use
  Company Number: US-ADVANZ PHARMA-202210007314

PATIENT

DRUGS (7)
  1. CLONIDINE [Suspect]
     Active Substance: CLONIDINE
     Dosage: 15 UG, QID
  2. CLONIDINE [Suspect]
     Active Substance: CLONIDINE
     Dosage: UNK (180? THE PRESCRIBED CONCENTRATION)
  3. METHADONE [Suspect]
     Active Substance: METHADONE HYDROCHLORIDE
     Dosage: 0.15 MG, QD (WEANING)
  4. LASIX [Concomitant]
     Active Substance: FUROSEMIDE
     Dosage: UNK, QD
  5. SILDENAFIL [Concomitant]
     Active Substance: SILDENAFIL
     Dosage: UNK, QD
  6. NALOXONE [Concomitant]
     Active Substance: NALOXONE
     Indication: Mental status changes
     Dosage: UNK
  7. EPINEPHRINE [Concomitant]
     Active Substance: EPINEPHRINE
     Indication: Hypotension
     Dosage: UNK

REACTIONS (3)
  - Stress cardiomyopathy [Recovering/Resolving]
  - Accidental overdose [Recovering/Resolving]
  - Product preparation error [Recovering/Resolving]
